FAERS Safety Report 8829518 (Version 1)
Quarter: 2012Q4

REPORT INFORMATION
  Report Type: 
  Country: US (occurrence: US)
  Receive Date: 20121008
  Receipt Date: 20121008
  Transmission Date: 20130627
  Serious: No
  Sender: FDA-Public Use
  Company Number: US-TEVA-333457USA

PATIENT
  Age: 2 Year
  Sex: Female
  Weight: 17.25 kg

DRUGS (1)
  1. QVAR [Suspect]
     Dosage: 160 Microgram Daily;
     Dates: start: 20120405

REACTIONS (3)
  - Agitation [Not Recovered/Not Resolved]
  - Psychomotor hyperactivity [Not Recovered/Not Resolved]
  - Abnormal behaviour [Not Recovered/Not Resolved]
